FAERS Safety Report 7307803-4 (Version None)
Quarter: 2011Q1

REPORT INFORMATION
  Report Type: 
  Country: None (occurrence: None)
  Receive Date: 20110223
  Receipt Date: 20110209
  Transmission Date: 20110831
  Serious: Yes (Hospitalization, Other)
  Sender: FDA-Public Use
  Company Number: JP-PFIZER INC-2011019766

PATIENT
  Age: 65 Year
  Sex: Male
  Weight: 85 kg

DRUGS (6)
  1. COVERSYL [Concomitant]
     Indication: BLOOD PRESSURE MANAGEMENT
     Dosage: UNK
     Dates: start: 20100402, end: 20110105
  2. MICARDIS [Concomitant]
     Indication: BLOOD PRESSURE MANAGEMENT
     Dosage: UNK
     Dates: start: 20100402
  3. CALBLOCK [Concomitant]
     Indication: BLOOD PRESSURE MANAGEMENT
     Dosage: UNK
     Dates: start: 20101125, end: 20110105
  4. LIPITOR [Suspect]
     Indication: DYSLIPIDAEMIA
     Dosage: 5 MG, UID/QD
     Route: 048
     Dates: start: 20100402, end: 20110105
  5. PLAVIX [Concomitant]
     Indication: PROPHYLAXIS
     Dosage: UNK
     Dates: start: 20100402
  6. ZETIA [Suspect]
     Indication: DYSLIPIDAEMIA
     Dosage: 10 MG, UID
     Route: 048
     Dates: start: 20100402, end: 20110105

REACTIONS (2)
  - RHABDOMYOLYSIS [None]
  - COLON CANCER [None]
